FAERS Safety Report 7085003-3 (Version None)
Quarter: 2010Q4

REPORT INFORMATION
  Report Type: 
  Country: None (occurrence: None)
  Receive Date: 20101105
  Receipt Date: 20101026
  Transmission Date: 20110411
  Serious: Yes (Hospitalization, Other)
  Sender: FDA-Public Use
  Company Number: NL-BAYER-201044134GPV

PATIENT
  Age: 0 Hour
  Sex: Male

DRUGS (1)
  1. MIRENA [Suspect]
     Indication: PRODUCT USED FOR UNKNOWN INDICATION
     Dosage: 20 MCG VIA MOTHER
     Route: 050
     Dates: start: 20100101

REACTIONS (2)
  - DEVELOPMENTAL DELAY [None]
  - PREMATURE BABY [None]
